FAERS Safety Report 7591850-1 (Version None)
Quarter: 2011Q2

REPORT INFORMATION
  Report Type: 
  Country: None (occurrence: None)
  Receive Date: 20110603
  Receipt Date: 20110223
  Transmission Date: 20111010
  Serious: No
  Sender: FDA-Public Use
  Company Number: 2011SP008587

PATIENT
  Age: 40 Year
  Sex: Female

DRUGS (1)
  1. SAPHRIS [Suspect]
     Indication: BIPOLAR DISORDER
     Dosage: 5 MG;PO
     Route: 048

REACTIONS (3)
  - INCORRECT DOSE ADMINISTERED [None]
  - NAUSEA [None]
  - ABDOMINAL DISCOMFORT [None]
